FAERS Safety Report 12503649 (Version 1)
Quarter: 2016Q2

REPORT INFORMATION
  Report Type: Spontaneous
  Country: US (occurrence: None)
  Receive Date: 20160627
  Receipt Date: 20160627
  Transmission Date: 20160815
  Serious: Yes (Other)
  Sender: FDA-Public Use
  Company Number: None

PATIENT
  Age: 69 Year
  Sex: Female
  Weight: 42.87 kg

DRUGS (7)
  1. ZIOPTAN [Suspect]
     Active Substance: TAFLUPROST
     Indication: GLAUCOMA
     Dosage: QD, INTO THE EYE
  2. MULTIVITE [Concomitant]
     Active Substance: VITAMINS
  3. GLUCOSAMINE [Concomitant]
     Active Substance: GLUCOSAMINE
  4. METOPROLOL ER [Concomitant]
     Active Substance: METOPROLOL SUCCINATE
  5. OMEPRAZOLE. [Concomitant]
     Active Substance: OMEPRAZOLE
  6. PEPCID AC [Concomitant]
     Active Substance: FAMOTIDINE
  7. CALCIUM W/VITAMIN D [Concomitant]
     Active Substance: CALCIUM\VITAMIN D

REACTIONS (3)
  - Scleral disorder [None]
  - Scleral hyperaemia [None]
  - Corneal abrasion [None]

NARRATIVE: CASE EVENT DATE: 20160515
